FAERS Safety Report 10302091 (Version 5)
Quarter: 2014Q4

REPORT INFORMATION
  Report Type: Spontaneous
  Country: FR (occurrence: FR)
  Receive Date: 20140714
  Receipt Date: 20141113
  Transmission Date: 20150528
  Serious: Yes (Disabling, Other)
  Sender: FDA-Public Use
  Company Number: FR-TEVA-493288ISR

PATIENT
  Age: 63 Year
  Sex: Female
  Weight: 45 kg

DRUGS (3)
  1. SINEMET LP [Concomitant]
     Active Substance: CARBIDOPA\LEVODOPA
     Indication: PARKINSON^S DISEASE
  2. CARBIDOPA LEVODOPA TEVA 10MG/100MG [Suspect]
     Active Substance: CARBIDOPA\LEVODOPA
     Indication: PARKINSON^S DISEASE
     Route: 048
     Dates: end: 2014
  3. SINEMET [Concomitant]
     Active Substance: CARBIDOPA\LEVODOPA
     Indication: PARKINSON^S DISEASE

REACTIONS (10)
  - Motor dysfunction [Unknown]
  - Muscle contracture [Not Recovered/Not Resolved]
  - Abasia [Recovered/Resolved]
  - Arthralgia [Unknown]
  - Abnormal loss of weight [Not Recovered/Not Resolved]
  - Wrong technique in drug usage process [Unknown]
  - Muscle rigidity [Unknown]
  - Pain in extremity [Unknown]
  - Dystonia [Not Recovered/Not Resolved]
  - Drug ineffective [Unknown]

NARRATIVE: CASE EVENT DATE: 2014
